FAERS Safety Report 6341865-6 (Version None)
Quarter: 2009Q3

REPORT INFORMATION
  Report Type: 
  Country: None (occurrence: None)
  Receive Date: 20090904
  Receipt Date: 20090828
  Transmission Date: 20100115
  Serious: Yes (Hospitalization)
  Sender: FDA-Public Use
  Company Number: US-ASTRAZENECA-2009SE10576

PATIENT
  Age: 22 Year
  Sex: Male
  Weight: 77.1 kg

DRUGS (1)
  1. SEROQUEL [Suspect]
     Route: 048
     Dates: end: 20070101

REACTIONS (1)
  - HOSPITALISATION [None]
